FAERS Safety Report 4612754-X (Version None)
Quarter: 2005Q1

REPORT INFORMATION
  Report Type: 
  Country: None (occurrence: None)
  Receive Date: 20050318
  Receipt Date: 20050211
  Transmission Date: 20050727
  Serious: Yes (Other)
  Sender: FDA-Public Use
  Company Number: DE-MERCK-0502DEU00106

PATIENT
  Age: 45 Year
  Sex: Male
  Weight: 84 kg

DRUGS (1)
  1. PROPECIA [Suspect]
     Indication: MALE PATTERN BALDNESS
     Route: 048
     Dates: start: 19990301, end: 20050301

REACTIONS (1)
  - OSTEONECROSIS [None]
